FAERS Safety Report 15862630 (Version 1)
Quarter: 2019Q1

REPORT INFORMATION
  Report Type: Spontaneous
  Country: PL (occurrence: PL)
  Receive Date: 20190124
  Receipt Date: 20190124
  Transmission Date: 20190417
  Serious: Yes (Death)
  Sender: FDA-Public Use
  Company Number: PL-BAYER-2019-015011

PATIENT

DRUGS (5)
  1. TICAGRELOR. [Suspect]
     Active Substance: TICAGRELOR
  2. CLOPIDROGEL SANDOZ [Suspect]
     Active Substance: CLOPIDOGREL BISULFATE
  3. FENTANYL. [Suspect]
     Active Substance: FENTANYL
  4. ACETYLSALICYLIC ACID (} 100 MG) [Suspect]
     Active Substance: ASPIRIN
     Dosage: 300 MG, UNK
  5. CEFAZOLIN [Suspect]
     Active Substance: CEFAZOLIN

REACTIONS (2)
  - Labelled drug-drug interaction medication error [Fatal]
  - Haemothorax [Fatal]
